FAERS Safety Report 24432998 (Version 1)
Quarter: 2024Q4

REPORT INFORMATION
  Report Type: Report from Study
  Country: US (occurrence: US)
  Receive Date: 20241014
  Receipt Date: 20241014
  Transmission Date: 20250114
  Serious: Yes (Hospitalization, Other)
  Sender: ALEXION PHARMACEUTICALS
  Company Number: US-AstraZeneca-CH-00648237A

PATIENT
  Age: 57 Year

DRUGS (4)
  1. SOLIRIS [Suspect]
     Active Substance: ECULIZUMAB
     Indication: Neuromyelitis optica spectrum disorder
     Dosage: UNK
     Route: 065
  2. SOLIRIS [Suspect]
     Active Substance: ECULIZUMAB
     Dosage: UNK
  3. SOLIRIS [Suspect]
     Active Substance: ECULIZUMAB
     Dosage: UNK
     Route: 065
  4. SOLIRIS [Suspect]
     Active Substance: ECULIZUMAB
     Dosage: UNK

REACTIONS (10)
  - Systemic lupus erythematosus [Unknown]
  - Blindness [Unknown]
  - Multiple sclerosis [Unknown]
  - Asthenia [Unknown]
  - Neck pain [Unknown]
  - Pain in extremity [Unknown]
  - Balance disorder [Unknown]
  - Arthritis [Unknown]
  - Pain [Unknown]
  - Loss of personal independence in daily activities [Unknown]
